FAERS Safety Report 7493252-5 (Version None)
Quarter: 2011Q2

REPORT INFORMATION
  Report Type: 
  Country: None (occurrence: None)
  Receive Date: 20110520
  Receipt Date: 20110420
  Transmission Date: 20111010
  Serious: Yes (Hospitalization, Other)
  Sender: FDA-Public Use
  Company Number: US-BAYER-2011-009782

PATIENT
  Age: 22 Year
  Sex: Female
  Weight: 61.224 kg

DRUGS (4)
  1. ADDERALL 10 [Concomitant]
     Indication: ATTENTION DEFICIT/HYPERACTIVITY DISORDER
  2. ADDERALL 10 [Concomitant]
     Indication: DEPRESSION
     Dosage: 20 MG, BID
     Route: 048
  3. YAZ [Suspect]
     Indication: CONTRACEPTION
     Dosage: UNK
     Dates: start: 20070301, end: 20090901
  4. PEPCID AC [Concomitant]
     Dosage: QD PRN
     Route: 048

REACTIONS (3)
  - CHOLECYSTECTOMY [None]
  - CHOLECYSTITIS ACUTE [None]
  - CHOLELITHIASIS [None]
